FAERS Safety Report 11284950 (Version 2)
Quarter: 2015Q3

REPORT INFORMATION
  Report Type: Report from Study
  Country: US (occurrence: US)
  Receive Date: 20150720
  Receipt Date: 20150909
  Transmission Date: 20151125
  Serious: Yes (Hospitalization, Other)
  Sender: FDA-Public Use
  Company Number: US-AEGERION PHARMACEUTICAL INC.-AEGR001456

PATIENT

DRUGS (2)
  1. JUXTAPID [Suspect]
     Active Substance: LOMITAPIDE MESYLATE
     Indication: TYPE IIA HYPERLIPIDAEMIA
     Dosage: 5 MG,
     Route: 048
     Dates: start: 20150510, end: 20150625
  2. JUXTAPID [Suspect]
     Active Substance: LOMITAPIDE MESYLATE
     Dosage: 5 MG, EVERY THIRD DAY
     Route: 048
     Dates: start: 20150626

REACTIONS (9)
  - Muscle spasms [Not Recovered/Not Resolved]
  - Headache [Unknown]
  - Vascular procedure complication [Unknown]
  - Dyspnoea [Unknown]
  - Aortic aneurysm [Unknown]
  - Weight decreased [Unknown]
  - Therapy cessation [Unknown]
  - Inappropriate schedule of drug administration [Unknown]
  - Asthenia [Unknown]

NARRATIVE: CASE EVENT DATE: 2015
